FAERS Safety Report 4768053-9 (Version None)
Quarter: 2005Q3

REPORT INFORMATION
  Report Type: 
  Country: None (occurrence: None)
  Receive Date: 20050913
  Receipt Date: 20050829
  Transmission Date: 20060218
  Serious: Yes (Other)
  Sender: FDA-Public Use
  Company Number: 2005057346

PATIENT
  Age: 17 Year
  Sex: Female
  Weight: 88.4514 kg

DRUGS (2)
  1. BEXTRA [Suspect]
     Indication: INTERVERTEBRAL DISC PROTRUSION
     Dosage: ORAL
     Route: 048
     Dates: start: 20040301
  2. ULTRACET [Concomitant]

REACTIONS (2)
  - ACNE [None]
  - INTERVERTEBRAL DISC OPERATION [None]
